FAERS Safety Report 6031870-1 (Version None)
Quarter: 2008Q4

REPORT INFORMATION
  Report Type: 
  Country: None (occurrence: None)
  Receive Date: 20081224
  Receipt Date: 20080903
  Transmission Date: 20090506
  Serious: No
  Sender: FDA-Public Use
  Company Number: 2008PV036612

PATIENT
  Sex: Female

DRUGS (2)
  1. SYMLIN [Suspect]
     Indication: DRUG USE FOR UNKNOWN INDICATION
     Dosage: ; SC
     Route: 058
     Dates: start: 20080901
  2. INSULIN NR [Concomitant]

REACTIONS (2)
  - BLOOD GLUCOSE INCREASED [None]
  - DIZZINESS [None]
